FAERS Safety Report 9099006 (Version 1)
Quarter: 2013Q1

REPORT INFORMATION
  Report Type: Spontaneous
  Country: US (occurrence: US)
  Receive Date: 20130213
  Receipt Date: 20130213
  Transmission Date: 20140127
  Serious: Yes (Other)
  Sender: FDA-Public Use
  Company Number: US-ROCHE-755096

PATIENT
  Sex: Male
  Weight: 86.26 kg

DRUGS (4)
  1. ACCUTANE [Suspect]
     Indication: ACNE
     Route: 065
  2. SEROQUEL [Concomitant]
     Indication: DEPRESSION
  3. PAXIL [Concomitant]
  4. WELLBUTRIN [Concomitant]

REACTIONS (5)
  - Inflammatory bowel disease [Unknown]
  - Colitis ulcerative [Unknown]
  - Depression [Unknown]
  - Enteritis infectious [Unknown]
  - Irritable bowel syndrome [Unknown]
